FAERS Safety Report 4923210-3 (Version None)
Quarter: 2006Q1

REPORT INFORMATION
  Report Type: 
  Country: None (occurrence: None)
  Receive Date: 20060127
  Receipt Date: 20051001
  Transmission Date: 20060701
  Serious: Yes (Other)
  Sender: FDA-Public Use
  Company Number: 2005137797

PATIENT
  Age: 35 Year
  Sex: Female
  Weight: 57.6068 kg

DRUGS (5)
  1. LYRICA [Suspect]
     Indication: HEADACHE
     Dosage: 50 MG
     Route: 065
     Dates: start: 20050930
  2. XANAX [Concomitant]
  3. KLONOPIN [Concomitant]
  4. CYMBALTA [Concomitant]
  5. ALEVE [Concomitant]

REACTIONS (2)
  - ANXIETY [None]
  - CONVULSION [None]
